FAERS Safety Report 17188189 (Version 1)
Quarter: 2019Q4

REPORT INFORMATION
  Report Type: Spontaneous
  Country: DE (occurrence: DE)
  Receive Date: 20191221
  Receipt Date: 20191221
  Transmission Date: 20200122
  Serious: Yes (Death)
  Sender: FDA-Public Use
  Company Number: DE-009507513-1912DEU007454

PATIENT
  Age: 47 Year
  Sex: Female
  Weight: 50 kg

DRUGS (5)
  1. MCP (METOCLOPRAMIDE HYDROCHLORIDE) [Concomitant]
     Dosage: UNK
     Dates: end: 20191123
  2. PANTOPRAZOLE [Concomitant]
     Active Substance: PANTOPRAZOLE
     Dosage: DAILY DOSE: 40 MILLGRAM(S) EVERY DAYS
  3. KEYTRUDA [Suspect]
     Active Substance: PEMBROLIZUMAB
     Indication: METASTATIC BRONCHIAL CARCINOMA
     Dosage: UNK
  4. UNACID [Concomitant]
     Dosage: UNK
     Dates: end: 20191119
  5. CARBOPLATIN. [Concomitant]
     Active Substance: CARBOPLATIN
     Dosage: UNK

REACTIONS (2)
  - Pancytopenia [Fatal]
  - Toxic epidermal necrolysis [Fatal]

NARRATIVE: CASE EVENT DATE: 20191119
